FAERS Safety Report 15205238 (Version 1)
Quarter: 2018Q3

REPORT INFORMATION
  Report Type: Spontaneous
  Country: US (occurrence: US)
  Receive Date: 20180726
  Receipt Date: 20180726
  Transmission Date: 20181010
  Serious: No
  Sender: FDA-Public Use
  Company Number: US-GALDERMA-US18020119

PATIENT
  Sex: Female

DRUGS (6)
  1. PROACTIV EYE BRIGHTENING SERUM [Concomitant]
     Active Substance: COSMETICS
     Indication: EYE SWELLING
     Route: 061
     Dates: start: 20180317, end: 20180325
  2. PROACTIV MD DAILY OIL CONTROL SPF 30 [Suspect]
     Active Substance: AVOBENZONE\OCTISALATE\OCTOCRYLENE
     Indication: EYE SWELLING
     Route: 061
     Dates: start: 20180317, end: 20180325
  3. PROACTIV MD DEEP CLEANSING FACE WASH [Concomitant]
     Active Substance: COSMETICS
     Indication: EYE SWELLING
     Route: 061
     Dates: start: 20180317, end: 20180325
  4. IRON [Concomitant]
     Active Substance: IRON
  5. PROACTIV MD ADAPALENE ACNE TREATMENT [Suspect]
     Active Substance: ADAPALENE
     Indication: EYE SWELLING
     Dosage: 0.1%
     Route: 061
     Dates: start: 20180317, end: 20180325
  6. PROACTIV MOISTURE REPAIR [Concomitant]
     Active Substance: COSMETICS
     Indication: EYE SWELLING
     Route: 061
     Dates: start: 20180317, end: 20180325

REACTIONS (4)
  - Skin burning sensation [Recovering/Resolving]
  - Product use in unapproved indication [Recovered/Resolved]
  - Skin exfoliation [Recovering/Resolving]
  - Dry skin [Recovering/Resolving]

NARRATIVE: CASE EVENT DATE: 20180317
